FAERS Safety Report 6834772-3 (Version None)
Quarter: 2010Q3

REPORT INFORMATION
  Report Type: 
  Country: None (occurrence: None)
  Receive Date: 20100712
  Receipt Date: 20070412
  Transmission Date: 20110219
  Serious: No
  Sender: FDA-Public Use
  Company Number: US-PFIZER INC-2007030258

PATIENT
  Sex: Female
  Weight: 134.26 kg

DRUGS (15)
  1. CHANTIX [Suspect]
     Indication: SMOKING CESSATION THERAPY
     Dates: start: 20070101, end: 20070101
  2. PREMARIN [Concomitant]
  3. LISINOPRIL AND HYDROCHLOROTHIAZIDE [Concomitant]
     Indication: HYPERTENSION
  4. ATENOLOL [Concomitant]
     Indication: HYPERTENSION
  5. NEXIUM [Concomitant]
     Indication: HIATUS HERNIA
  6. LAMICTAL [Concomitant]
     Indication: DEPRESSION
  7. LAMICTAL [Concomitant]
     Indication: ANXIETY
  8. LAMICTAL [Concomitant]
     Indication: PANIC ATTACK
  9. LAMICTAL [Concomitant]
     Indication: BIPOLAR DISORDER
  10. LORAZEPAM [Concomitant]
     Indication: ANXIETY
  11. LORAZEPAM [Concomitant]
     Indication: PANIC ATTACK
  12. CYMBALTA [Concomitant]
     Indication: DEPRESSION
  13. CYMBALTA [Concomitant]
     Indication: ANXIETY
  14. CYMBALTA [Concomitant]
     Indication: PANIC ATTACK
  15. LITHIUM [Concomitant]
     Indication: BIPOLAR DISORDER

REACTIONS (2)
  - ABNORMAL DREAMS [None]
  - POOR QUALITY SLEEP [None]
